FAERS Safety Report 5647949-X (Version None)
Quarter: 2008Q1

REPORT INFORMATION
  Report Type: 
  Country: None (occurrence: None)
  Receive Date: 20080229
  Receipt Date: 20080214
  Transmission Date: 20080703
  Serious: Yes (Hospitalization)
  Sender: FDA-Public Use
  Company Number: 2008MB000011

PATIENT
  Age: 10 Year
  Sex: Male

DRUGS (2)
  1. CEPHALEXIN [Suspect]
     Indication: ABSCESS
     Dosage: 250 MG;QID;PO
     Route: 048
  2. CEFTRIAXONE [Suspect]
     Indication: ABSCESS
     Dosage: 1 GM;BID;IV, X1;IV
     Route: 042

REACTIONS (9)
  - HAEMOLYTIC ANAEMIA [None]
  - MENTAL STATUS CHANGES [None]
  - PERITONEAL DIALYSIS [None]
  - PRURITUS GENERALISED [None]
  - RASH MACULO-PAPULAR [None]
  - RENAL FAILURE ACUTE [None]
  - RENAL TUBULAR NECROSIS [None]
  - SKIN INFECTION [None]
  - SOMNOLENCE [None]
